FAERS Safety Report 12631620 (Version 2)
Quarter: 2016Q3

REPORT INFORMATION
  Report Type: Spontaneous
  Country: US (occurrence: US)
  Receive Date: 20160808
  Receipt Date: 20160808
  Transmission Date: 20161109
  Serious: No
  Sender: FDA-Public Use
  Company Number: US-BEH-2015054944

PATIENT
  Sex: Male
  Weight: 72 kg

DRUGS (30)
  1. HIZENTRA [Suspect]
     Active Substance: HUMAN IMMUNOGLOBULIN G
     Indication: IMMUNODEFICIENCY COMMON VARIABLE
     Route: 058
  2. EFFEXOR XR [Concomitant]
     Active Substance: VENLAFAXINE HYDROCHLORIDE
  3. ALBUTEROL. [Concomitant]
     Active Substance: ALBUTEROL
  4. HIZENTRA [Suspect]
     Active Substance: HUMAN IMMUNOGLOBULIN G
     Route: 058
  5. PHENTERMINE. [Concomitant]
     Active Substance: PHENTERMINE
  6. TESTOSTERONE. [Concomitant]
     Active Substance: TESTOSTERONE
  7. HCG [Concomitant]
     Active Substance: GONADOTROPHIN, CHORIONIC
  8. DIPHENHYDRAMINE. [Concomitant]
     Active Substance: DIPHENHYDRAMINE
  9. AZITHROMYCIN ANHYDROUS. [Concomitant]
     Active Substance: AZITHROMYCIN ANHYDROUS
  10. BUT-ASA-CAFFEINE [Concomitant]
  11. LIDODERM [Concomitant]
     Active Substance: LIDOCAINE
  12. BUTORPHANOL [Concomitant]
     Active Substance: BUTORPHANOL
  13. DIAZEPAM. [Concomitant]
     Active Substance: DIAZEPAM
  14. PRILOSEC [Concomitant]
     Active Substance: OMEPRAZOLE MAGNESIUM
  15. RIBOFLAVIN [Concomitant]
     Active Substance: RIBOFLAVIN
  16. COENZYME Q10 [Concomitant]
     Active Substance: UBIDECARENONE
  17. NORCO [Concomitant]
     Active Substance: ACETAMINOPHEN\HYDROCODONE BITARTRATE
  18. CLONIDINE. [Concomitant]
     Active Substance: CLONIDINE
  19. LEVOFLOXACIN. [Concomitant]
     Active Substance: LEVOFLOXACIN
  20. HIZENTRA [Suspect]
     Active Substance: HUMAN IMMUNOGLOBULIN G
     Route: 058
  21. OXYGEN. [Concomitant]
     Active Substance: OXYGEN
  22. PAXIL [Concomitant]
     Active Substance: PAROXETINE HYDROCHLORIDE
  23. FLEXERIL [Concomitant]
     Active Substance: CYCLOBENZAPRINE HYDROCHLORIDE
  24. METOPROLOL. [Concomitant]
     Active Substance: METOPROLOL
  25. HYDRALAZINE [Concomitant]
     Active Substance: HYDRALAZINE HYDROCHLORIDE
  26. CYANOCOBALAMIN. [Concomitant]
     Active Substance: CYANOCOBALAMIN
  27. CARVEDILOL. [Concomitant]
     Active Substance: CARVEDILOL
  28. PAROXETINE. [Concomitant]
     Active Substance: PAROXETINE
  29. EPIPEN [Concomitant]
     Active Substance: EPINEPHRINE
  30. ACETYLCARNITINE [Concomitant]
     Active Substance: ACETYLCARNITINE

REACTIONS (1)
  - Influenza like illness [Unknown]
